FAERS Safety Report 6758173-1 (Version None)
Quarter: 2010Q2

REPORT INFORMATION
  Report Type: 
  Country: None (occurrence: None)
  Receive Date: 20100524
  Receipt Date: 20100219
  Transmission Date: 20101027
  Serious: No
  Sender: FDA-Public Use
  Company Number: 007417

PATIENT
  Sex: Female
  Weight: 96.1 kg

DRUGS (13)
  1. CIMZIA [Suspect]
     Dosage: 200MG EVERY 2 WEEKS SUBCUTANEOUS, 400 MG MONTHLY SUBCUTANEOUS
     Route: 058
     Dates: start: 20100218
  2. CYMBALTA [Concomitant]
  3. ELAVIL [Concomitant]
  4. FERROUS GLUCONATE [Concomitant]
  5. HUMALOG [Concomitant]
  6. LANTUS [Concomitant]
  7. METHADONE [Concomitant]
  8. PHENERGAN [Concomitant]
  9. ROBAXIN [Concomitant]
  10. VASOTEC [Concomitant]
  11. OMEPRAZOLE [Concomitant]
  12. VITAMIN D [Concomitant]
  13. VITAMIN B-12 [Concomitant]

REACTIONS (1)
  - INCORRECT DOSE ADMINISTERED [None]
